FAERS Safety Report 4803162-7 (Version None)
Quarter: 2005Q4

REPORT INFORMATION
  Report Type: 
  Country: None (occurrence: None)
  Receive Date: 20051013
  Receipt Date: 20050927
  Transmission Date: 20060501
  Serious: Yes (Hospitalization)
  Sender: FDA-Public Use
  Company Number: US_0509122346

PATIENT
  Age: 57 Year
  Sex: Male

DRUGS (1)
  1. GLUCAGON [Suspect]
     Indication: HYPOGLYCAEMIA
     Dosage: 1.1 MG HOUR

REACTIONS (9)
  - AXILLARY VEIN THROMBOSIS [None]
  - EMBOLISM [None]
  - GLUCAGONOMA [None]
  - JUGULAR VEIN THROMBOSIS [None]
  - OEDEMA PERIPHERAL [None]
  - PAIN IN EXTREMITY [None]
  - SUBCLAVIAN VEIN THROMBOSIS [None]
  - THROMBOPHLEBITIS [None]
  - VENOUS THROMBOSIS [None]
